FAERS Safety Report 21678774 (Version 4)
Quarter: 2023Q1

REPORT INFORMATION
  Report Type: Spontaneous
  Country: US (occurrence: US)
  Receive Date: 20221204
  Receipt Date: 20230329
  Transmission Date: 20230417
  Serious: No
  Sender: FDA-Public Use
  Company Number: US-JNJFOC-20221141717

PATIENT
  Age: 43 Year
  Sex: Female

DRUGS (1)
  1. TREMFYA [Suspect]
     Active Substance: GUSELKUMAB
     Indication: Psoriatic arthropathy
     Route: 058
     Dates: start: 20221018

REACTIONS (3)
  - Drug delivery system malfunction [Unknown]
  - Product dose omission issue [Unknown]
  - Product administration error [Unknown]

NARRATIVE: CASE EVENT DATE: 20221116
